FAERS Safety Report 7878859-5 (Version None)
Quarter: 2011Q4

REPORT INFORMATION
  Report Type: 
  Country: None (occurrence: None)
  Receive Date: 20111024
  Receipt Date: 20110926
  Transmission Date: 20120403
  Serious: Yes (Other)
  Sender: FDA-Public Use
  Company Number: AMAG201100202

PATIENT
  Age: 60 Year
  Sex: Male

DRUGS (1)
  1. FERAHEME [Suspect]
     Dosage: 510 MG, SINGLE, IV BOLUS
     Route: 040
     Dates: start: 20110924, end: 20110924

REACTIONS (7)
  - COUGH [None]
  - BACK PAIN [None]
  - ERYTHEMA [None]
  - DYSPNOEA [None]
  - HYPOTENSION [None]
  - CHILLS [None]
  - DIZZINESS [None]
